FAERS Safety Report 7033350-3 (Version None)
Quarter: 2010Q4

REPORT INFORMATION
  Report Type: 
  Country: None (occurrence: None)
  Receive Date: 20101007
  Receipt Date: 20100924
  Transmission Date: 20110411
  Serious: Yes (Other)
  Sender: FDA-Public Use
  Company Number: AU-CELGENEUS-008-50794-10092222

PATIENT
  Sex: Male
  Weight: 66 kg

DRUGS (4)
  1. VIDAZA [Suspect]
     Route: 050
     Dates: start: 20100607
  2. ZOFRAN [Concomitant]
     Indication: NAUSEA
     Route: 065
  3. MAXOLON [Concomitant]
     Indication: NAUSEA
     Route: 065
  4. PERINDOPRIL ERBUMINE [Concomitant]
     Indication: PRODUCT USED FOR UNKNOWN INDICATION
     Route: 065

REACTIONS (1)
  - POLYARTHRITIS [None]
